FAERS Safety Report 4699066-3 (Version None)
Quarter: 2005Q2

REPORT INFORMATION
  Report Type: 
  Country: None (occurrence: None)
  Receive Date: 20050624
  Receipt Date: 20050617
  Transmission Date: 20051028
  Serious: Yes (Other)
  Sender: FDA-Public Use
  Company Number: US-BRISTOL-MYERS SQUIBB COMPANY-13007877

PATIENT
  Age: 69 Year
  Sex: Male
  Weight: 73 kg

DRUGS (12)
  1. SUSTIVA [Suspect]
     Indication: HIV INFECTION
     Route: 048
     Dates: start: 20050501
  2. TENORMIN [Concomitant]
     Indication: HYPERTENSION
     Dates: start: 19870101
  3. PROVIGIL [Concomitant]
  4. SYNTHROID [Concomitant]
  5. TRAZODONE HCL [Concomitant]
  6. NAMENDA [Concomitant]
  7. KLONOPIN [Concomitant]
     Dosage: 0.25 MG TWICE DAILY, 0.5 MG TAKEN AT BEDTIME
  8. WELLBUTRIN [Concomitant]
  9. FOLIC ACID [Concomitant]
  10. PRAVACHOL [Concomitant]
  11. MONOPRIL [Concomitant]
  12. PROSCAR [Concomitant]

REACTIONS (1)
  - BLOOD PRESSURE INCREASED [None]
